FAERS Safety Report 11820691 (Version 2)
Quarter: 2016Q3

REPORT INFORMATION
  Report Type: Spontaneous
  Country: US (occurrence: US)
  Receive Date: 20151210
  Receipt Date: 20160725
  Transmission Date: 20161109
  Serious: No
  Sender: FDA-Public Use
  Company Number: US-JNJFOC-20150205796

PATIENT
  Age: 76 Year
  Sex: Male

DRUGS (6)
  1. ASPIRIN. [Concomitant]
     Active Substance: ASPIRIN
  2. VITAMIN C [Concomitant]
     Active Substance: ASCORBIC ACID
  3. METOPROLOL. [Concomitant]
     Active Substance: METOPROLOL
  4. LISINOPRIL. [Concomitant]
     Active Substance: LISINOPRIL
  5. IMBRUVICA [Suspect]
     Active Substance: IBRUTINIB
     Indication: CHRONIC LYMPHOCYTIC LEUKAEMIA
     Route: 048
     Dates: start: 20141224
  6. VITAMIN D [Concomitant]
     Active Substance: CHOLECALCIFEROL

REACTIONS (4)
  - Acne [Unknown]
  - Hypertension [Unknown]
  - Staphylococcal skin infection [Unknown]
  - Impaired healing [Unknown]

NARRATIVE: CASE EVENT DATE: 201501
